FAERS Safety Report 8928875 (Version 1)
Quarter: 2012Q4

REPORT INFORMATION
  Report Type: 
  Country: US (occurrence: US)
  Receive Date: 20121128
  Receipt Date: 20121128
  Transmission Date: 20130627
  Serious: No
  Sender: FDA-Public Use
  Company Number: US-009507513-1211USA004523

PATIENT
  Age: 21 Year
  Sex: Female
  Weight: 63.49 kg

DRUGS (1)
  1. IMPLANON [Suspect]
     Indication: CONTRACEPTION
     Dosage: 1 rod for 3 years
     Route: 059
     Dates: start: 20120426

REACTIONS (3)
  - Dizziness [Unknown]
  - Nausea [Unknown]
  - Menstrual disorder [Unknown]
